FAERS Safety Report 8430553-8 (Version None)
Quarter: 2012Q2

REPORT INFORMATION
  Report Type: 
  Country: None (occurrence: None)
  Receive Date: 20120612
  Receipt Date: 20111209
  Transmission Date: 20120825
  Serious: Yes (Other)
  Sender: FDA-Public Use
  Company Number: JP-GLAXOSMITHKLINE-B0769242A

PATIENT
  Age: 70 Year
  Sex: Female
  Weight: 42 kg

DRUGS (3)
  1. VALTREX [Suspect]
     Indication: HERPES ZOSTER
     Dosage: 3000MG PER DAY
     Route: 048
     Dates: start: 20110805, end: 20110809
  2. VALTREX [Suspect]
     Dosage: 2000MG PER DAY
     Dates: start: 20110810, end: 20110810
  3. VALTREX [Suspect]
     Dosage: 1000MG PER DAY
     Dates: start: 20110811, end: 20110811

REACTIONS (6)
  - RENAL IMPAIRMENT [None]
  - ALTERED STATE OF CONSCIOUSNESS [None]
  - THALAMIC INFARCTION [None]
  - BLOOD CREATININE INCREASED [None]
  - DISTURBANCE IN ATTENTION [None]
  - ENCEPHALOPATHY [None]
